FAERS Safety Report 4482315-4 (Version None)
Quarter: 2004Q4

REPORT INFORMATION
  Report Type: 
  Country: None (occurrence: None)
  Receive Date: 20041022
  Receipt Date: 20041014
  Transmission Date: 20050328
  Serious: Yes (Hospitalization)
  Sender: FDA-Public Use
  Company Number: CN-MERCK-0410CHN00027

PATIENT
  Age: 52 Year
  Sex: Male

DRUGS (4)
  1. VIOXX [Suspect]
     Indication: PROPHYLAXIS
     Route: 048
     Dates: start: 20040621, end: 20040627
  2. LEVOGLUTAMIDE [Concomitant]
     Indication: GASTRITIS
     Route: 048
     Dates: start: 20040621, end: 20040701
  3. DOMPERIDONE [Concomitant]
     Indication: GASTRITIS
     Route: 048
     Dates: start: 20040621, end: 20040701
  4. [THERAPY UNSPECIFIED] [Concomitant]
     Indication: GASTRITIS
     Route: 048
     Dates: start: 20040621, end: 20040701

REACTIONS (3)
  - ABDOMINAL DISCOMFORT [None]
  - ANXIETY [None]
  - DIZZINESS [None]
